FAERS Safety Report 6618408-2 (Version None)
Quarter: 2010Q1

REPORT INFORMATION
  Report Type: 
  Country: None (occurrence: None)
  Receive Date: 20100308
  Receipt Date: 20100301
  Transmission Date: 20100710
  Serious: Yes (Life-Threatening)
  Sender: FDA-Public Use
  Company Number: B0636413A

PATIENT
  Age: 4 Year
  Sex: Male
  Weight: 16 kg

DRUGS (1)
  1. AUGMENTIN '125' [Suspect]
     Indication: ACUTE TONSILLITIS
     Route: 048
     Dates: start: 20100212, end: 20100212

REACTIONS (3)
  - OEDEMA [None]
  - RASH GENERALISED [None]
  - URTICARIA [None]
